FAERS Safety Report 9695931 (Version 1)
Quarter: 2013Q4

REPORT INFORMATION
  Report Type: Spontaneous
  Country: IT (occurrence: IT)
  Receive Date: 20131119
  Receipt Date: 20131119
  Transmission Date: 20140711
  Serious: Yes (Other)
  Sender: FDA-Public Use
  Company Number: IT-TEVA-444489ISR

PATIENT
  Age: 55 Year
  Sex: Female
  Weight: 39 kg

DRUGS (2)
  1. IRINOTECAN CLORIDRATO TRIIDRATO [Suspect]
     Indication: ADENOCARCINOMA OF COLON
     Dosage: 140 MILLIGRAM DAILY;
     Route: 042
     Dates: start: 20130627, end: 20130627
  2. ERBITUX [Concomitant]
     Indication: ADENOCARCINOMA OF COLON
     Dates: start: 20130219, end: 20130822

REACTIONS (3)
  - Anaemia [Recovered/Resolved]
  - Neutropenia [Recovered/Resolved]
  - Myalgia [Recovered/Resolved]
